FAERS Safety Report 20817740 (Version 1)
Quarter: 2022Q2

REPORT INFORMATION
  Report Type: Report from Study
  Country: BR (occurrence: BR)
  Receive Date: 20220512
  Receipt Date: 20220512
  Transmission Date: 20220720
  Serious: Yes (Hospitalization, Other)
  Sender: FDA-Public Use
  Company Number: BR-AMGEN-BRASL2021028955

PATIENT
  Age: 55 Year
  Sex: Female

DRUGS (7)
  1. VECTIBIX [Suspect]
     Active Substance: PANITUMUMAB
     Indication: Colorectal cancer metastatic
     Dosage: UNK UNK, Q2WK (EVERY 15 DAYS)
     Route: 042
     Dates: start: 202009, end: 2020
  2. VECTIBIX [Suspect]
     Active Substance: PANITUMUMAB
     Dosage: UNK UNK, Q2WK (EVERY 15 DAYS)
     Route: 042
     Dates: start: 202102, end: 2021
  3. VECTIBIX [Suspect]
     Active Substance: PANITUMUMAB
     Dosage: UNK UNK, Q2WK (EVERY 15 DAYS)
     Route: 042
     Dates: start: 2021
  4. LOTAN [LOSARTAN POTASSIUM] [Concomitant]
     Indication: Blood pressure abnormal
     Dosage: 1 DOSAGE FORM, QD (5+100)
  5. GLYPHAGEN [Concomitant]
     Dosage: 2 DOSAGE FORM, QD
  6. CLONIDINE [Concomitant]
     Active Substance: CLONIDINE
     Indication: Product used for unknown indication
  7. GLIFAGE [Concomitant]
     Active Substance: METFORMIN HYDROCHLORIDE
     Indication: Product used for unknown indication

REACTIONS (21)
  - Cancer surgery [Recovering/Resolving]
  - Biliary obstruction [Unknown]
  - Muscle spasms [Unknown]
  - Diarrhoea [Unknown]
  - Chromaturia [Unknown]
  - Ocular icterus [Unknown]
  - Hair colour changes [Recovering/Resolving]
  - Scar [Recovering/Resolving]
  - Skin discolouration [Recovering/Resolving]
  - Nail discolouration [Recovered/Resolved]
  - Pain [Recovering/Resolving]
  - Nausea [Recovering/Resolving]
  - Dry skin [Unknown]
  - Aphthous ulcer [Recovering/Resolving]
  - Acne [Recovered/Resolved]
  - Alopecia [Recovered/Resolved]
  - Candida infection [Recovered/Resolved]
  - Illness [Recovered/Resolved]
  - Emotional distress [Recovering/Resolving]
  - Anaemia [Recovered/Resolved]
  - Weight decreased [Recovered/Resolved]

NARRATIVE: CASE EVENT DATE: 20200101
